FAERS Safety Report 18820084 (Version 3)
Quarter: 2021Q1

REPORT INFORMATION
  Report Type: Report from Study
  Country: DZ (occurrence: DZ)
  Receive Date: 20210202
  Receipt Date: 20210326
  Transmission Date: 20210419
  Serious: Yes (Hospitalization, Other)
  Sender: FDA-Public Use
  Company Number: DZ-EMD SERONO-9215401

PATIENT
  Age: 39 Year
  Sex: Male

DRUGS (1)
  1. REBIF [Suspect]
     Active Substance: INTERFERON BETA-1A
     Indication: MULTIPLE SCLEROSIS
     Route: 058
     Dates: start: 20170101, end: 20210218

REACTIONS (3)
  - Osteonecrosis [Unknown]
  - Osteomyelitis [Not Recovered/Not Resolved]
  - Bone abscess [Unknown]

NARRATIVE: CASE EVENT DATE: 201801
